FAERS Safety Report 9767454 (Version 3)
Quarter: 2014Q1

REPORT INFORMATION
  Report Type: Spontaneous
  Country: US (occurrence: US)
  Receive Date: 20131217
  Receipt Date: 20140227
  Transmission Date: 20141002
  Serious: Yes (Death, Hospitalization)
  Sender: FDA-Public Use
  Company Number: US-INCYTE CORPORATION-2013IN002956

PATIENT
  Age: 87 Year
  Sex: Male

DRUGS (8)
  1. JAKAFI [Suspect]
     Indication: MYELOFIBROSIS
     Dosage: 5 MG, BID
     Route: 048
     Dates: start: 201305
  2. JAKAFI [Suspect]
     Dosage: 5 MG, BID
     Route: 048
     Dates: start: 20130819
  3. JAKAFI [Suspect]
     Dosage: NOT SPECIFIED
     Route: 048
     Dates: start: 201310, end: 20140131
  4. POMALIDOMIDE [Concomitant]
  5. ALLOPURINOL [Concomitant]
  6. FOLIC ACID [Concomitant]
  7. LASIX                              /00032601/ [Concomitant]
  8. PROCARDIA                          /00340701/ [Concomitant]

REACTIONS (4)
  - Sepsis [Fatal]
  - Lung abscess [Fatal]
  - Fluid retention [Recovered/Resolved]
  - Aortic stenosis [Recovered/Resolved]
